FAERS Safety Report 19273703 (Version 1)
Quarter: 2021Q2

REPORT INFORMATION
  Report Type: Spontaneous
  Country: US (occurrence: US)
  Receive Date: 20210518
  Receipt Date: 20210518
  Transmission Date: 20210717
  Serious: Yes (Hospitalization)
  Sender: FDA-Public Use
  Company Number: None

PATIENT
  Sex: Female

DRUGS (7)
  1. HUMIRA [Suspect]
     Active Substance: ADALIMUMAB
     Indication: PSORIATIC ARTHROPATHY
     Route: 058
     Dates: start: 20180512
  2. CELECOXIB. [Concomitant]
     Active Substance: CELECOXIB
  3. AMLCOIPINE [Concomitant]
  4. CLONIDINE DIS [Concomitant]
  5. BETAMETH VAL [Concomitant]
  6. BUPROPION. [Concomitant]
     Active Substance: BUPROPION
  7. CONTRAVE [Concomitant]
     Active Substance: BUPROPION HYDROCHLORIDE\NALTREXONE HYDROCHLORIDE

REACTIONS (5)
  - Pneumonia [None]
  - Immune system disorder [None]
  - Mycobacterium avium complex infection [None]
  - Tuberculosis [None]
  - Irritable bowel syndrome [None]
